FAERS Safety Report 7795021-5 (Version None)
Quarter: 2011Q3

REPORT INFORMATION
  Report Type: 
  Country: None (occurrence: None)
  Receive Date: 20110930
  Receipt Date: 20110926
  Transmission Date: 20111222
  Serious: Yes (Death, Hospitalization, Other)
  Sender: FDA-Public Use
  Company Number: IMP_05436_2011

PATIENT
  Age: 78 Year
  Sex: Female

DRUGS (8)
  1. CETIRIZINE HCL [Concomitant]
  2. CILOSTAZOL [Suspect]
     Indication: PRODUCT USED FOR UNKNOWN INDICATION
     Dosage: (100 MG QD)
  3. SULPIRIDE [Concomitant]
  4. METHYLPREDNISOLONE [Concomitant]
  5. HYDROXYZINE [Concomitant]
  6. OMEPRAZOLE [Suspect]
     Indication: RASH PRURITIC
     Dosage: (20 MG QD)
  7. DEFLAZACORT [Concomitant]
  8. CARBAMAZEPINE [Suspect]
     Indication: RESTLESS LEGS SYNDROME
     Dosage: (100 MG QD)

REACTIONS (8)
  - LEUKOPENIA [None]
  - ACINETOBACTER TEST POSITIVE [None]
  - SEPTIC SHOCK [None]
  - CARDIOPULMONARY FAILURE [None]
  - TOXIC EPIDERMAL NECROLYSIS [None]
  - STAPHYLOCOCCUS TEST POSITIVE [None]
  - DRUG INTERACTION [None]
  - ENTEROBACTER TEST POSITIVE [None]
